FAERS Safety Report 13945750 (Version 6)
Quarter: 2021Q3

REPORT INFORMATION
  Report Type: Spontaneous
  Country: JP (occurrence: JP)
  Receive Date: 20170907
  Receipt Date: 20210725
  Transmission Date: 20211014
  Serious: Yes (Hospitalization, Other)
  Sender: FDA-Public Use
  Company Number: JP-UNITED THERAPEUTICS-UNT-2016-005268

PATIENT
  Age: 23 Year
  Sex: Male
  Weight: 42 kg

DRUGS (25)
  1. REMODULIN [Suspect]
     Active Substance: TREPROSTINIL
     Dosage: UNK, CONTINUING
     Route: 041
     Dates: start: 20160405, end: 20160613
  2. REMODULIN [Suspect]
     Active Substance: TREPROSTINIL
     Dosage: 0.030 ?G/KG, CONTINUING
     Route: 041
     Dates: start: 2016
  3. REMODULIN [Suspect]
     Active Substance: TREPROSTINIL
     Dosage: 0.014 ?G/KG, CONTINUING
     Route: 058
     Dates: start: 2016, end: 2016
  4. TAKEPRON [Concomitant]
     Active Substance: LANSOPRAZOLE
     Indication: GASTRITIS PROPHYLAXIS
     Dosage: UNK
     Route: 048
  5. URSO [Concomitant]
     Active Substance: URSODIOL
     Indication: HEPATITIS B
     Dosage: UNK
     Route: 048
     Dates: start: 20150928, end: 20170829
  6. REMODULIN [Suspect]
     Active Substance: TREPROSTINIL
     Indication: PULMONARY ARTERIAL HYPERTENSION
     Dosage: UNK, CONTINUING
     Route: 041
     Dates: start: 20150825, end: 2015
  7. REMODULIN [Suspect]
     Active Substance: TREPROSTINIL
     Dosage: 0.085 ?G/KG, CONTINUING
     Route: 041
  8. VOLIBRIS [Concomitant]
     Active Substance: AMBRISENTAN
     Indication: PULMONARY ARTERIAL HYPERTENSION
     Dosage: UNK
     Route: 048
     Dates: start: 200904, end: 20151001
  9. BARACLUDE [Concomitant]
     Active Substance: ENTECAVIR
     Indication: ANTIVIRAL TREATMENT
     Dosage: UNK
     Route: 048
  10. SELARA [Concomitant]
     Active Substance: EPLERENONE
     Indication: FLUID RETENTION
     Dosage: UNK
     Route: 048
  11. REMODULIN [Suspect]
     Active Substance: TREPROSTINIL
     Indication: PULMONARY ARTERIAL HYPERTENSION
     Dosage: UNK, CONTINUING
     Route: 058
     Dates: start: 20160329, end: 201603
  12. FUROSEMIDE. [Concomitant]
     Active Substance: FUROSEMIDE
     Indication: FLUID RETENTION
     Dosage: UNK
     Route: 048
  13. REMODULIN [Suspect]
     Active Substance: TREPROSTINIL
     Dosage: 0.0405 ?G/KG, CONTINUING
     Route: 041
     Dates: end: 201602
  14. REMODULIN [Suspect]
     Active Substance: TREPROSTINIL
     Dosage: UNK, CONTINUING
     Route: 041
     Dates: start: 201607, end: 2016
  15. K?SUPPLY [Concomitant]
     Active Substance: POTASSIUM CHLORIDE
     Indication: HYPOKALAEMIA
     Dosage: UNK
     Route: 048
     Dates: end: 20160914
  16. REMODULIN [Suspect]
     Active Substance: TREPROSTINIL
     Dosage: 0.034 ?G/KG, CONTINUING
     Route: 041
     Dates: start: 201602, end: 20160329
  17. REMODULIN [Suspect]
     Active Substance: TREPROSTINIL
     Dosage: 0.024 ?G/KG, CONTINUING
     Route: 058
     Dates: start: 201603, end: 20160405
  18. REMODULIN [Suspect]
     Active Substance: TREPROSTINIL
     Dosage: 0.040 ?G/KG, CONTINUING
     Route: 041
     Dates: start: 2015
  19. REMODULIN [Suspect]
     Active Substance: TREPROSTINIL
     Dosage: 0.0145 ?G/KG, CONTINUING
     Route: 058
     Dates: start: 2016, end: 2016
  20. ADCIRCA [Concomitant]
     Active Substance: TADALAFIL
     Indication: PULMONARY ARTERIAL HYPERTENSION
     Dosage: UNK
     Route: 048
     Dates: start: 201503, end: 20160125
  21. CALONAL [Concomitant]
     Active Substance: ACETAMINOPHEN
     Indication: HEADACHE
     Dosage: UNK
     Route: 065
  22. FERROUS SULFATE. [Concomitant]
     Active Substance: FERROUS SULFATE
     Indication: PROPHYLAXIS
     Dosage: UNK
     Route: 048
     Dates: start: 20150811, end: 20160310
  23. OPSUMIT [Concomitant]
     Active Substance: MACITENTAN
     Indication: PULMONARY ARTERIAL HYPERTENSION
     Dosage: UNK
     Route: 048
     Dates: start: 20151002
  24. TRACLEER [Concomitant]
     Active Substance: BOSENTAN
     Indication: PULMONARY ARTERIAL HYPERTENSION
     Dosage: UNK
     Route: 065
  25. ADEMPAS [Concomitant]
     Active Substance: RIOCIGUAT
     Indication: PULMONARY ARTERIAL HYPERTENSION
     Dosage: UNK
     Route: 048
     Dates: start: 20160126

REACTIONS (12)
  - Bronchitis [Recovered/Resolved]
  - Catheter site infection [Unknown]
  - Injection site erythema [Recovered/Resolved]
  - Complication associated with device [Unknown]
  - Injection site pain [Recovered/Resolved]
  - Venous occlusion [Unknown]
  - Vascular device infection [Recovered/Resolved]
  - Vascular device infection [Recovered/Resolved]
  - Decreased appetite [Unknown]
  - Vascular device infection [Recovered/Resolved]
  - Injection site warmth [Recovered/Resolved]
  - Sleep disorder [Unknown]

NARRATIVE: CASE EVENT DATE: 20160219
